FAERS Safety Report 25358350 (Version 4)
Quarter: 2025Q3

REPORT INFORMATION
  Report Type: Report from Study
  Country: US (occurrence: US)
  Receive Date: 20250526
  Receipt Date: 20250801
  Transmission Date: 20251021
  Serious: No
  Sender: MALLINCKRODT
  Company Number: US-MALLINCKRODT-MNK202502622

PATIENT
  Sex: Male
  Weight: 200 kg

DRUGS (2)
  1. CORTICOTROPIN [Suspect]
     Active Substance: CORTICOTROPIN
     Indication: Sarcoidosis
     Route: 058
     Dates: start: 20250423
  2. URSODIOL [Concomitant]
     Active Substance: URSODIOL

REACTIONS (4)
  - Stomatitis [Recovered/Resolved]
  - Mucosal excoriation [Recovered/Resolved]
  - Joint swelling [Unknown]
  - Weight increased [Unknown]

NARRATIVE: CASE EVENT DATE: 20250101
